FAERS Safety Report 20426583 (Version 1)
Quarter: 2022Q1

REPORT INFORMATION
  Report Type: Report from Study
  Country: US (occurrence: US)
  Receive Date: 20220204
  Receipt Date: 20220204
  Transmission Date: 20220423
  Serious: No
  Sender: FDA-Public Use
  Company Number: US-EXELIXIS-CABO-21045122

PATIENT
  Age: 49 Year
  Sex: Female

DRUGS (3)
  1. CABOMETYX [Suspect]
     Active Substance: CABOZANTINIB S-MALATE
     Indication: Carcinoid tumour of the liver
     Dosage: 40 MG, QD
     Dates: start: 20210917
  2. CABOMETYX [Suspect]
     Active Substance: CABOZANTINIB S-MALATE
     Dosage: 40 MG, QD
  3. CABOMETYX [Suspect]
     Active Substance: CABOZANTINIB S-MALATE
     Dosage: 40 MG, QD

REACTIONS (17)
  - Blood calcium increased [Unknown]
  - Memory impairment [Unknown]
  - Dysgeusia [Unknown]
  - Gingival bleeding [Unknown]
  - Weight decreased [Unknown]
  - Constipation [Not Recovered/Not Resolved]
  - Dry skin [Recovering/Resolving]
  - Blood pressure increased [Not Recovered/Not Resolved]
  - Stomatitis [Not Recovered/Not Resolved]
  - Nausea [Not Recovered/Not Resolved]
  - Fatigue [Recovering/Resolving]
  - Decreased appetite [Unknown]
  - Dry mouth [Unknown]
  - Diarrhoea [Unknown]
  - Abdominal pain [Unknown]
  - Product dose omission issue [Unknown]
  - Off label use [Unknown]

NARRATIVE: CASE EVENT DATE: 20211011
